FAERS Safety Report 6769988-8 (Version None)
Quarter: 2010Q2

REPORT INFORMATION
  Report Type: 
  Country: None (occurrence: None)
  Receive Date: 20100615
  Receipt Date: 20100607
  Transmission Date: 20101027
  Serious: Yes (Other)
  Sender: FDA-Public Use
  Company Number: KR-TEVA-237351ISR

PATIENT
  Age: 41 Year
  Sex: Male

DRUGS (2)
  1. CISPLATIN [Suspect]
     Indication: URETERIC CANCER
  2. GEMCITABINE HCL [Suspect]
     Indication: URETERIC CANCER

REACTIONS (1)
  - ENTEROCOLITIS [None]
